FAERS Safety Report 12556300 (Version 2)
Quarter: 2016Q3

REPORT INFORMATION
  Report Type: Spontaneous
  Country: JP (occurrence: JP)
  Receive Date: 20160714
  Receipt Date: 20160719
  Transmission Date: 20161109
  Serious: Yes (Hospitalization, Other)
  Sender: FDA-Public Use
  Company Number: JP-BRISTOL-MYERS SQUIBB COMPANY-BMS-2016-057308

PATIENT
  Age: 42 Year
  Sex: Female

DRUGS (2)
  1. OPDIVO [Suspect]
     Active Substance: NIVOLUMAB
     Indication: NON-SMALL CELL LUNG CANCER
     Dosage: 240 MG, 3 TIMES/WK
     Route: 041
     Dates: start: 20160607, end: 20160607
  2. OPDIVO [Suspect]
     Active Substance: NIVOLUMAB
     Dosage: 240 MG, 3 TIMES/WK
     Route: 041
     Dates: start: 20160705, end: 20160705

REACTIONS (2)
  - Cerebral infarction [Not Recovered/Not Resolved]
  - Off label use [Unknown]

NARRATIVE: CASE EVENT DATE: 20160701
